FAERS Safety Report 14669534 (Version 1)
Quarter: 2018Q1

REPORT INFORMATION
  Report Type: Spontaneous
  Country: US (occurrence: US)
  Receive Date: 20180322
  Receipt Date: 20180322
  Transmission Date: 20180509
  Serious: No
  Sender: FDA-Public Use
  Company Number: US-GLENMARK PHARMACEUTICALS-2017GMK027130

PATIENT

DRUGS (3)
  1. FLUCONAZOLE. [Suspect]
     Active Substance: FLUCONAZOLE
     Indication: FUNGAL INFECTION
     Dosage: 1 DF, QD EVERY 3 DAYS
     Route: 048
     Dates: start: 20170407, end: 20170409
  2. FLUCONAZOLE. [Suspect]
     Active Substance: FLUCONAZOLE
     Dosage: 1 DF, QD
     Route: 048
     Dates: start: 20170420, end: 20170420
  3. FLUCONAZOLE. [Suspect]
     Active Substance: FLUCONAZOLE
     Dosage: 1 DF, QD
     Route: 048
     Dates: start: 20170424, end: 20170424

REACTIONS (4)
  - Drug ineffective [Recovered/Resolved]
  - Inappropriate schedule of drug administration [Recovered/Resolved]
  - Burning sensation [Recovered/Resolved]
  - Pruritus [Recovering/Resolving]

NARRATIVE: CASE EVENT DATE: 20170407
